FAERS Safety Report 26070501 (Version 1)
Quarter: 2025Q4

REPORT INFORMATION
  Report Type: Spontaneous
  Country: US (occurrence: US)
  Receive Date: 20251120
  Receipt Date: 20251120
  Transmission Date: 20260118
  Serious: No
  Sender: MYLAN
  Company Number: US-MYLANLABS-2025M1096688

PATIENT
  Age: 25 Year
  Sex: Female

DRUGS (1)
  1. XULANE [Suspect]
     Active Substance: ETHINYL ESTRADIOL\NORELGESTROMIN
     Indication: Product used for unknown indication
     Dosage: 150 PER 35 MICROGRAM, QD (PER DAY)
     Dates: start: 2023

REACTIONS (3)
  - Application site pain [Unknown]
  - Application site dryness [Unknown]
  - Application site erythema [Unknown]

NARRATIVE: CASE EVENT DATE: 20251109
